FAERS Safety Report 5165355-1 (Version None)
Quarter: 2006Q4

REPORT INFORMATION
  Report Type: 
  Country: None (occurrence: None)
  Receive Date: 20061206
  Receipt Date: 20060828
  Transmission Date: 20070319
  Serious: Yes (Hospitalization, Other)
  Sender: FDA-Public Use
  Company Number: US-BAYER-200613638BCC

PATIENT
  Age: 41 Year
  Sex: Female
  Weight: 78 kg

DRUGS (2)
  1. ALEVE [Suspect]
     Indication: PAIN
     Dosage: TOTAL DAILY DOSE: 440 MG  UNIT DOSE: 220 MG
     Route: 048
  2. PEPCID [Concomitant]

REACTIONS (4)
  - BLOOD DISORDER [None]
  - CEREBROVASCULAR ACCIDENT [None]
  - HEART DISEASE CONGENITAL [None]
  - VOLUME BLOOD INCREASED [None]
